FAERS Safety Report 7088888-X (Version None)
Quarter: 2010Q4

REPORT INFORMATION
  Report Type: 
  Country: None (occurrence: None)
  Receive Date: 20101108
  Receipt Date: 20101107
  Transmission Date: 20110411
  Serious: Yes (Other)
  Sender: FDA-Public Use
  Company Number: AT-PFIZER INC-2010142164

PATIENT
  Sex: Female

DRUGS (1)
  1. SAYANA [Suspect]
     Dosage: 104 MG, EVERY 3 MONTHS
     Route: 058

REACTIONS (6)
  - ARTHROPATHY [None]
  - INJECTION SITE DISCOMFORT [None]
  - INJECTION SITE ERYTHEMA [None]
  - INJECTION SITE PAIN [None]
  - INJECTION SITE REACTION [None]
  - VEIN DISORDER [None]
